FAERS Safety Report 7808082-1 (Version None)
Quarter: 2011Q4

REPORT INFORMATION
  Report Type: 
  Country: None (occurrence: None)
  Receive Date: 20111011
  Receipt Date: 20111003
  Transmission Date: 20120403
  Serious: Yes (Life-Threatening, Hospitalization)
  Sender: FDA-Public Use
  Company Number: FR-GILEAD-2011-0044632

PATIENT

DRUGS (7)
  1. DOCETAXEL [Concomitant]
     Indication: SQUAMOUS CELL CARCINOMA
     Dosage: UNK MG/M2, UNK
     Route: 042
     Dates: start: 20110721, end: 20110811
  2. NORVIR [Concomitant]
     Indication: HIV INFECTION
     Dosage: UNK
     Route: 048
     Dates: end: 20110818
  3. CARBOPLATIN [Suspect]
     Indication: SQUAMOUS CELL CARCINOMA
     Dosage: UNK MG/M2, UNK
     Route: 042
     Dates: start: 20110721
  4. REYATAZ [Concomitant]
     Indication: HIV INFECTION
     Dosage: UNK
     Route: 048
     Dates: end: 20110818
  5. KEPPRA [Concomitant]
     Dosage: UNK
     Dates: start: 20090101
  6. TRUVADA [Suspect]
     Indication: HIV INFECTION
     Dosage: UNK
     Route: 048
     Dates: end: 20110818
  7. TEGRETOL [Suspect]
     Indication: EPILEPSY
     Dosage: UNK
     Route: 048
     Dates: start: 20090101, end: 20110901

REACTIONS (3)
  - NEUTROPENIA [None]
  - SKIN EXFOLIATION [None]
  - DERMATITIS BULLOUS [None]
